FAERS Safety Report 24131504 (Version 1)
Quarter: 2024Q3

REPORT INFORMATION
  Report Type: Spontaneous
  Country: US (occurrence: None)
  Receive Date: 20240723
  Receipt Date: 20240723
  Transmission Date: 20241017
  Serious: Yes (Other)
  Sender: Public
  Company Number: None

PATIENT
  Age: 52 Year
  Sex: Female
  Weight: 72 kg

DRUGS (1)
  1. DALBAVANCIN [Suspect]
     Active Substance: DALBAVANCIN
     Indication: Osteomyelitis
     Dosage: 1500 MG WEEKLY X 2 DOSES INTRAVENOUS
     Route: 042
     Dates: start: 20240722, end: 20240722

REACTIONS (8)
  - Erythema [None]
  - Erythema [None]
  - Chest pain [None]
  - Pain [None]
  - Back pain [None]
  - Dyspnoea [None]
  - Infusion related reaction [None]
  - Therapy cessation [None]

NARRATIVE: CASE EVENT DATE: 20240722
